FAERS Safety Report 23311639 (Version 1)
Quarter: 2023Q4

REPORT INFORMATION
  Report Type: Spontaneous
  Country: CN (occurrence: CN)
  Receive Date: 20231219
  Receipt Date: 20231219
  Transmission Date: 20240110
  Serious: Yes (Hospitalization)
  Sender: FDA-Public Use
  Company Number: CN-JNJFOC-20231241881

PATIENT
  Age: 60 Year
  Sex: Male
  Weight: 65 kg

DRUGS (3)
  1. CHILDRENS MOTRIN [Suspect]
     Active Substance: IBUPROFEN
     Indication: Pyrexia
     Route: 048
     Dates: start: 20231202, end: 20231204
  2. HERBALS [Suspect]
     Active Substance: HERBALS
     Indication: Pyrexia
     Route: 048
     Dates: start: 20231202, end: 20231204
  3. CEFACLOR [Suspect]
     Active Substance: CEFACLOR
     Indication: Pyrexia
     Route: 048
     Dates: start: 20231202, end: 20231204

REACTIONS (2)
  - Product administered to patient of inappropriate age [Recovering/Resolving]
  - Drug eruption [Recovering/Resolving]

NARRATIVE: CASE EVENT DATE: 20231204
